FAERS Safety Report 17692223 (Version 1)
Quarter: 2020Q2

REPORT INFORMATION
  Report Type: Spontaneous
  Country: US (occurrence: US)
  Receive Date: 20200422
  Receipt Date: 20200422
  Transmission Date: 20200714
  Serious: Yes (Other)
  Sender: FDA-Public Use
  Company Number: US-MYLANLABS-2020M1040419

PATIENT
  Age: 18 Year
  Sex: Male

DRUGS (26)
  1. HYDROCODONE [Suspect]
     Active Substance: HYDROCODONE
     Indication: NEURALGIA
  2. DEXAMETHASONE. [Concomitant]
     Active Substance: DEXAMETHASONE
     Indication: CANCER PAIN
  3. DRONABINOL. [Concomitant]
     Active Substance: DRONABINOL
     Indication: DRUG THERAPY
  4. PREGABALIN. [Suspect]
     Active Substance: PREGABALIN
     Indication: CANCER PAIN
     Dosage: UNK
     Route: 065
  5. MORPHINE [Suspect]
     Active Substance: MORPHINE
     Indication: CANCER PAIN
     Dosage: 30 MILLIGRAM, Q8H
     Route: 065
  6. GABAPENTIN. [Concomitant]
     Active Substance: GABAPENTIN
     Indication: ALLODYNIA
  7. DULOXETINE. [Concomitant]
     Active Substance: DULOXETINE
     Indication: CANCER PAIN
     Dosage: 60 MILLIGRAM, QD
     Route: 065
  8. LIDOCAINE. [Concomitant]
     Active Substance: LIDOCAINE
     Indication: NEURALGIA
     Dosage: UNK
     Route: 061
  9. PREGABALIN. [Suspect]
     Active Substance: PREGABALIN
     Indication: NEURALGIA
  10. MORPHINE [Suspect]
     Active Substance: MORPHINE
     Dosage: MILLIGRAM EQUIVALENTS EQUALED 900 MG
     Route: 065
  11. AMITRIPTYLINE [Concomitant]
     Active Substance: AMITRIPTYLINE
     Indication: CANCER PAIN
  12. LIDOCAINE. [Concomitant]
     Active Substance: LIDOCAINE
     Indication: CANCER PAIN
  13. DRONABINOL. [Concomitant]
     Active Substance: DRONABINOL
     Indication: CANCER PAIN
  14. METHADONE [Suspect]
     Active Substance: METHADONE HYDROCHLORIDE
     Indication: NEURALGIA
  15. AMITRIPTYLINE [Concomitant]
     Active Substance: AMITRIPTYLINE
     Indication: NEURALGIA
     Dosage: AT BEDTIME
     Route: 065
  16. KEPPRA [Concomitant]
     Active Substance: LEVETIRACETAM
     Indication: PETIT MAL EPILEPSY
     Dosage: UNK
     Route: 065
  17. HYDROCODONE [Suspect]
     Active Substance: HYDROCODONE
     Indication: CANCER PAIN
     Dosage: UNK
     Route: 065
  18. OXYCODONE [Suspect]
     Active Substance: OXYCODONE
     Indication: NEURALGIA
     Dosage: EVERY 2-3 HOURS AS NEEDED, WHICH HE WAS TAKING APPROXIMATELY 10 TIMES DAILY
     Route: 065
  19. GABAPENTIN. [Concomitant]
     Active Substance: GABAPENTIN
     Indication: CANCER PAIN
  20. GABAPENTIN. [Concomitant]
     Active Substance: GABAPENTIN
     Indication: NEURALGIA
     Dosage: 900 MILLIGRAM, TID
     Route: 065
  21. DEXAMETHASONE. [Concomitant]
     Active Substance: DEXAMETHASONE
     Indication: NEURALGIA
     Dosage: 3 MILLIGRAM, TID
     Route: 065
  22. MORPHINE [Suspect]
     Active Substance: MORPHINE
     Indication: NEURALGIA
     Dosage: 60 MILLIGRAM, Q8H
     Route: 065
  23. METHADONE [Suspect]
     Active Substance: METHADONE HYDROCHLORIDE
     Indication: CANCER PAIN
     Dosage: 25 MILLIGRAM, Q8H
     Route: 065
  24. OXYCODONE [Suspect]
     Active Substance: OXYCODONE
     Indication: CANCER PAIN
     Dosage: 5-10 MG EVERY 4 HOURS AS NEEDED
     Route: 065
  25. DULOXETINE. [Concomitant]
     Active Substance: DULOXETINE
     Indication: NEURALGIA
     Dosage: 30 MILLIGRAM, QD
     Route: 065
  26. DRONABINOL. [Concomitant]
     Active Substance: DRONABINOL
     Indication: NEURALGIA
     Dosage: UNK
     Route: 065

REACTIONS (2)
  - Drug ineffective [Unknown]
  - Off label use [Unknown]
